FAERS Safety Report 18932130 (Version 2)
Quarter: 2021Q1

REPORT INFORMATION
  Report Type: Report from Study
  Country: KR (occurrence: KR)
  Receive Date: 20210223
  Receipt Date: 20210301
  Transmission Date: 20210420
  Serious: Yes (Hospitalization)
  Sender: FDA-Public Use
  Company Number: KR-CELLTRION INC.-2021KR002216

PATIENT

DRUGS (9)
  1. HERZUMA [Suspect]
     Active Substance: TRASTUZUMAB-PKRB
     Dosage: 475.2 MG (6 MG/KG) EVERY 3 WEEKS
     Route: 042
     Dates: start: 20210209, end: 20210209
  2. FASLODEX [Suspect]
     Active Substance: FULVESTRANT
     Indication: BREAST CANCER
     Dosage: UNK
  3. POLYBUTINE [Concomitant]
     Indication: DIARRHOEA
     Dosage: 100 MG, TID (PRN)
     Route: 048
     Dates: start: 20210202
  4. ABEMACICLIB [Suspect]
     Active Substance: ABEMACICLIB
     Indication: BREAST CANCER
     Dosage: UNK
  5. FOTAGEL [Concomitant]
     Indication: DIARRHOEA
     Dosage: 20 ML, TID (PRN)
     Route: 048
     Dates: start: 20210202
  6. HERZUMA [Suspect]
     Active Substance: TRASTUZUMAB-PKRB
     Indication: BREAST CANCER
     Dosage: 633.6 MG (8 MG/KG) EVERY 3 WEEKS
     Route: 042
     Dates: start: 20210119, end: 20210119
  7. LOPERAMIDE [Concomitant]
     Active Substance: LOPERAMIDE
     Indication: DIARRHOEA
     Dosage: 2 MG, BID (PRN)
     Route: 048
     Dates: start: 20210202
  8. BUSCOPAN [Concomitant]
     Active Substance: BUTYLSCOPOLAMINE BROMIDE
     Indication: DIARRHOEA
     Dosage: 10 MG, TID (PRN)
     Route: 048
     Dates: start: 20210202
  9. SYNATURA [Concomitant]
     Indication: DIARRHOEA
     Dosage: 15 ML, TID (PRN)
     Route: 048
     Dates: start: 20210202

REACTIONS (1)
  - Hemiparesis [Recovering/Resolving]

NARRATIVE: CASE EVENT DATE: 20210218
